FAERS Safety Report 7210520-2 (Version None)
Quarter: 2011Q1

REPORT INFORMATION
  Report Type: 
  Country: None (occurrence: None)
  Receive Date: 20110105
  Receipt Date: 20110103
  Transmission Date: 20110831
  Serious: Yes (Death)
  Sender: FDA-Public Use
  Company Number: NL-ROCHE-736493

PATIENT
  Sex: Male

DRUGS (2)
  1. TAXANES [Suspect]
     Route: 042
  2. XELODA [Suspect]
     Route: 048

REACTIONS (1)
  - NEUTROPENIA [None]
